FAERS Safety Report 22049002 (Version 1)
Quarter: 2023Q1

REPORT INFORMATION
  Report Type: Spontaneous
  Country: PR (occurrence: PR)
  Receive Date: 20230301
  Receipt Date: 20230301
  Transmission Date: 20230417
  Serious: No
  Sender: FDA-Public Use
  Company Number: PR-JNJFOC-20230257777

PATIENT
  Age: 67 Year
  Sex: Male

DRUGS (1)
  1. ERLEADA [Suspect]
     Active Substance: APALUTAMIDE
     Indication: Prostate cancer
     Route: 048

REACTIONS (1)
  - Thyroid disorder [Unknown]

NARRATIVE: CASE EVENT DATE: 20230101
